FAERS Safety Report 16139925 (Version 1)
Quarter: 2019Q1

REPORT INFORMATION
  Report Type: Spontaneous
  Country: US (occurrence: US)
  Receive Date: 20190226
  Receipt Date: 20190226
  Transmission Date: 20190418
  Serious: No
  Sender: FDA-Public Use
  Company Number: None

PATIENT
  Age: 8 Year
  Sex: Female
  Weight: 29.48 kg

DRUGS (1)
  1. CLINDAMYCIN 7MG/5ML ORAL SOLUTION [Suspect]
     Active Substance: CLINDAMYCIN PALMITATE HYDROCHLORIDE
     Indication: TOOTH INFECTION
     Route: 048
     Dates: start: 20190204, end: 20190211

REACTIONS (3)
  - Liquid product physical issue [None]
  - Abdominal discomfort [None]
  - Wrong technique in product usage process [None]

NARRATIVE: CASE EVENT DATE: 20190211
